FAERS Safety Report 24138396 (Version 2)
Quarter: 2024Q3

REPORT INFORMATION
  Report Type: Spontaneous
  Country: JP (occurrence: JP)
  Receive Date: 20240725
  Receipt Date: 20240820
  Transmission Date: 20241017
  Serious: Yes (Other)
  Sender: AMERICAN REGENT
  Company Number: JP-AMERICAN REGENT INC-2024002815

PATIENT
  Age: 42 Year
  Sex: Female

DRUGS (6)
  1. FERINJECT [Suspect]
     Active Substance: FERRIC CARBOXYMALTOSE
     Indication: Iron deficiency anaemia
     Dosage: 500 MILLIGRAM, 1 IN 1 WK
     Dates: start: 20240513, end: 20240513
  2. FERINJECT [Suspect]
     Active Substance: FERRIC CARBOXYMALTOSE
     Dosage: 500 MILLIGRAM, 1 IN 1 WK
     Dates: start: 20240521, end: 20240521
  3. FERINJECT [Suspect]
     Active Substance: FERRIC CARBOXYMALTOSE
     Dosage: 500 MILLIGRAM, 1 IN 1 WK
     Dates: start: 20240529, end: 20240529
  4. FERINJECT [Suspect]
     Active Substance: FERRIC CARBOXYMALTOSE
     Dosage: 500 MILLIGRAM, 1 IN 1 WK
     Dates: start: 20240606, end: 20240606
  5. FERINJECT [Suspect]
     Active Substance: FERRIC CARBOXYMALTOSE
     Dosage: 500 MILLIGRAM, 1 IN 1 WK
     Dates: start: 20240613, end: 20240613
  6. FERINJECT [Suspect]
     Active Substance: FERRIC CARBOXYMALTOSE
     Dosage: 500 MILLIGRAM, 1 IN 1 WK
     Dates: start: 20240621, end: 20240621

REACTIONS (4)
  - Haemochromatosis [Unknown]
  - Serum ferritin increased [Unknown]
  - Liver disorder [Unknown]
  - Overdose [Unknown]

NARRATIVE: CASE EVENT DATE: 20240621
